FAERS Safety Report 7394653-6 (Version None)
Quarter: 2011Q2

REPORT INFORMATION
  Report Type: 
  Country: None (occurrence: None)
  Receive Date: 20110405
  Receipt Date: 20101021
  Transmission Date: 20111010
  Serious: Yes (Hospitalization, Other)
  Sender: FDA-Public Use
  Company Number: US-BAYER-201015984NA

PATIENT
  Sex: Female
  Weight: 121 kg

DRUGS (9)
  1. YASMIN [Suspect]
     Indication: PRODUCT USED FOR UNKNOWN INDICATION
     Route: 048
  2. ASCORBIC ACID [Concomitant]
     Indication: PRODUCT USED FOR UNKNOWN INDICATION
  3. YAZ [Suspect]
     Indication: PRODUCT USED FOR UNKNOWN INDICATION
     Route: 048
     Dates: start: 20070501, end: 20081101
  4. NAPROXEN [Concomitant]
     Indication: HEADACHE
     Dates: start: 19980101, end: 20100101
  5. UNASYN [Concomitant]
     Dosage: UNK
     Dates: start: 20070830
  6. TORADOL [Concomitant]
     Dosage: 30 MG, UNK
     Dates: start: 20070830
  7. MORPHINE [Concomitant]
     Dosage: UNK
     Dates: start: 20070830
  8. NAPROXEN [Concomitant]
     Indication: MIGRAINE
  9. IBUPROFEN [Concomitant]
     Indication: PRODUCT USED FOR UNKNOWN INDICATION

REACTIONS (5)
  - GALLBLADDER CHOLESTEROLOSIS [None]
  - PANCREATITIS [None]
  - CHOLECYSTECTOMY [None]
  - CHOLECYSTITIS [None]
  - CHOLELITHIASIS [None]
